FAERS Safety Report 23813744 (Version 2)
Quarter: 2024Q2

REPORT INFORMATION
  Report Type: Report from Study
  Country: US (occurrence: US)
  Receive Date: 20240503
  Receipt Date: 20240530
  Transmission Date: 20240716
  Serious: No
  Sender: FDA-Public Use
  Company Number: US-ACADIA PHARMACEUTICALS INC.-ACA-2024-TRF-001753

PATIENT
  Age: 8 Year
  Sex: Female

DRUGS (3)
  1. DAYBUE [Suspect]
     Active Substance: TROFINETIDE
     Indication: Rett syndrome
     Dosage: 5 MILLILITER
     Route: 048
  2. DAYBUE [Suspect]
     Active Substance: TROFINETIDE
     Dosage: ADD 5 EVERY BOTTLE
     Route: 048
  3. DAYBUE [Suspect]
     Active Substance: TROFINETIDE
     Dosage: 40 MILLILITER, BID
     Route: 048

REACTIONS (17)
  - Insomnia [Not Recovered/Not Resolved]
  - Faeces soft [Not Recovered/Not Resolved]
  - Inflammatory marker increased [Recovering/Resolving]
  - Monoparesis [Recovering/Resolving]
  - Muscle tightness [Recovering/Resolving]
  - Pain [Recovering/Resolving]
  - Tremor [Recovering/Resolving]
  - Pain in extremity [Not Recovered/Not Resolved]
  - Foot deformity [Not Recovered/Not Resolved]
  - Knee deformity [Not Recovered/Not Resolved]
  - Underdose [Unknown]
  - Breath holding [Unknown]
  - Musculoskeletal stiffness [Unknown]
  - Dehydration [Recovered/Resolved]
  - Anxiety [Unknown]
  - Fatigue [Not Recovered/Not Resolved]
  - Diarrhoea [Not Recovered/Not Resolved]

NARRATIVE: CASE EVENT DATE: 20240504
